FAERS Safety Report 4417040-9 (Version None)
Quarter: 2004Q3

REPORT INFORMATION
  Report Type: 
  Country: None (occurrence: None)
  Receive Date: 20040806
  Receipt Date: 20040730
  Transmission Date: 20050211
  Serious: Yes (Hospitalization)
  Sender: FDA-Public Use
  Company Number: US-AMGEN-US085554

PATIENT
  Age: 67 Year
  Sex: Male

DRUGS (10)
  1. SENSIPAR [Suspect]
     Indication: HYPERPARATHYROIDISM SECONDARY
     Route: 048
     Dates: start: 20040601, end: 20040725
  2. ZEMPLAR (ABBOTT LABORATORIES) [Concomitant]
  3. ALLOPURINOL [Concomitant]
  4. COLCHICINE [Concomitant]
  5. MEVACOR [Concomitant]
  6. ATARAX [Concomitant]
  7. RENAGEL [Concomitant]
  8. NIFEDIPINE [Concomitant]
  9. SODIUM BICARBONATE [Concomitant]
  10. NEPHRO-VITE [Concomitant]

REACTIONS (5)
  - DIFFICULTY IN WALKING [None]
  - DIZZINESS [None]
  - GRAFT THROMBOSIS [None]
  - HYPOAESTHESIA [None]
  - MUSCULOSKELETAL STIFFNESS [None]
